FAERS Safety Report 17210942 (Version 5)
Quarter: 2020Q1

REPORT INFORMATION
  Report Type: Spontaneous
  Country: US (occurrence: US)
  Receive Date: 20191227
  Receipt Date: 20200316
  Transmission Date: 20200409
  Serious: Yes (Hospitalization, Other)
  Sender: FDA-Public Use
  Company Number: US-ACTELION-A-NJ2019-199757

PATIENT
  Age: 50 Year
  Sex: Female
  Weight: 74.2 kg

DRUGS (10)
  1. SILDENAFIL. [Concomitant]
     Active Substance: SILDENAFIL
  2. UPTRAVI [Suspect]
     Active Substance: SELEXIPAG
     Indication: PRODUCT USED FOR UNKNOWN INDICATION
     Dosage: 800 MCG, BID
     Route: 048
     Dates: start: 20200102
  3. UPTRAVI [Suspect]
     Active Substance: SELEXIPAG
     Dosage: 200 MCG
     Route: 048
     Dates: start: 20200102
  4. AMBRISENTAN [Suspect]
     Active Substance: AMBRISENTAN
     Indication: PRODUCT USED FOR UNKNOWN INDICATION
     Dosage: 10 MG, QD
     Route: 048
     Dates: start: 20191017
  5. UPTRAVI [Suspect]
     Active Substance: SELEXIPAG
     Dosage: 600 MCG, BID
     Route: 048
  6. CILOSTAZOL. [Concomitant]
     Active Substance: CILOSTAZOL
  7. UPTRAVI [Suspect]
     Active Substance: SELEXIPAG
     Dosage: 1000 MCG, BID
     Route: 048
  8. ESTRADIOL. [Concomitant]
     Active Substance: ESTRADIOL
  9. DULOXETINE. [Concomitant]
     Active Substance: DULOXETINE
  10. BUSPIRONE HYDROCHLORIDE. [Concomitant]
     Active Substance: BUSPIRONE HYDROCHLORIDE

REACTIONS (18)
  - Psoriatic arthropathy [Not Recovered/Not Resolved]
  - Lymphadenopathy [Unknown]
  - Oedema peripheral [Unknown]
  - Pneumonia [Unknown]
  - Oxygen saturation decreased [Not Recovered/Not Resolved]
  - Lung transplant [Unknown]
  - Blood pressure abnormal [Not Recovered/Not Resolved]
  - Arthralgia [Recovered/Resolved]
  - Pulmonary arterial hypertension [Not Recovered/Not Resolved]
  - Dyspnoea [Not Recovered/Not Resolved]
  - Product administration error [Unknown]
  - Pain [Recovered/Resolved]
  - Ventilation perfusion mismatch [Not Recovered/Not Resolved]
  - Lower respiratory tract infection [Not Recovered/Not Resolved]
  - Heart rate abnormal [Unknown]
  - Malaise [Not Recovered/Not Resolved]
  - Headache [Unknown]
  - Cardiovascular function test abnormal [Not Recovered/Not Resolved]

NARRATIVE: CASE EVENT DATE: 20200227
